FAERS Safety Report 4513326-8 (Version None)
Quarter: 2004Q4

REPORT INFORMATION
  Report Type: 
  Country: None (occurrence: None)
  Receive Date: 20041130
  Receipt Date: 20040809
  Transmission Date: 20050328
  Serious: No
  Sender: FDA-Public Use
  Company Number: US-BRISTOL-MYERS SQUIBB COMPANY-12664512

PATIENT
  Sex: Female

DRUGS (2)
  1. ERBITUX [Suspect]
     Route: 042
     Dates: start: 20040806, end: 20040806
  2. CAMPTOSAR [Concomitant]

REACTIONS (3)
  - ARTHRALGIA [None]
  - BREAST PAIN [None]
  - EXTRAVASATION [None]
